FAERS Safety Report 9394295 (Version 2)
Quarter: 2013Q3

REPORT INFORMATION
  Report Type: Spontaneous
  Country: FR (occurrence: FR)
  Receive Date: 20130711
  Receipt Date: 20130829
  Transmission Date: 20140515
  Serious: Yes (Other)
  Sender: FDA-Public Use
  Company Number: FR-ROCHE-1246234

PATIENT
  Age: 61 Year
  Sex: Female
  Weight: 63 kg

DRUGS (2)
  1. AVASTIN [Suspect]
     Indication: OVARIAN CANCER
     Route: 042
     Dates: start: 20130515
  2. CARBOPLATIN [Concomitant]
     Indication: OVARIAN CANCER
     Route: 042
     Dates: start: 2010

REACTIONS (6)
  - Back pain [Recovering/Resolving]
  - Fatigue [Not Recovered/Not Resolved]
  - Neck pain [Recovering/Resolving]
  - Hypertension [Recovering/Resolving]
  - Sciatica [Unknown]
  - Rosacea [Recovered/Resolved]
